FAERS Safety Report 7051777-0 (Version None)
Quarter: 2010Q4

REPORT INFORMATION
  Report Type: 
  Country: None (occurrence: None)
  Receive Date: 20101012
  Receipt Date: 20101006
  Transmission Date: 20110411
  Serious: Yes (Hospitalization)
  Sender: FDA-Public Use
  Company Number: AE10-015A

PATIENT
  Sex: Male
  Weight: 3.2 kg

DRUGS (3)
  1. LORCET-HD [Suspect]
     Dosage: TRANSPLACENTAL
     Route: 064
  2. COCAINE [Suspect]
     Dosage: TRANSPLACENTAL
     Route: 064
  3. ALCOHOL [Suspect]
     Dosage: TRANSPLACENTAL
     Route: 064

REACTIONS (8)
  - ATRIAL FLUTTER [None]
  - BLOOD PH DECREASED [None]
  - CAESAREAN SECTION [None]
  - FOETAL DISTRESS SYNDROME [None]
  - MATERNAL DRUGS AFFECTING FOETUS [None]
  - NEONATAL RESPIRATORY DISTRESS SYNDROME [None]
  - PREMATURE BABY [None]
  - TACHYCARDIA FOETAL [None]
